FAERS Safety Report 11685328 (Version 1)
Quarter: 2015Q4

REPORT INFORMATION
  Report Type: Spontaneous
  Country: US (occurrence: US)
  Receive Date: 20151030
  Receipt Date: 20151030
  Transmission Date: 20160304
  Serious: Yes (Other)
  Sender: FDA-Public Use
  Company Number: US-ACCORD-034812

PATIENT

DRUGS (2)
  1. KEPPRA [Suspect]
     Active Substance: LEVETIRACETAM
     Indication: PRODUCT USED FOR UNKNOWN INDICATION
     Dosage: TWICE A DAY
  2. TOPIRAMATE. [Suspect]
     Active Substance: TOPIRAMATE
     Indication: PRODUCT USED FOR UNKNOWN INDICATION
     Dosage: TWICE A DAY

REACTIONS (8)
  - Confusional state [Unknown]
  - Nausea [Unknown]
  - Mood swings [Unknown]
  - Fatigue [Unknown]
  - Alopecia [Unknown]
  - Amnesia [Unknown]
  - Anxiety [Unknown]
  - Myalgia [Unknown]
